FAERS Safety Report 9298550 (Version 1)
Quarter: 2013Q2

REPORT INFORMATION
  Report Type: Spontaneous
  Country: GB (occurrence: GB)
  Receive Date: 20130520
  Receipt Date: 20130520
  Transmission Date: 20140414
  Serious: Yes (Other)
  Sender: FDA-Public Use
  Company Number: GB-ROXANE LABORATORIES, INC.-2013-RO-00792RO

PATIENT
  Age: 44 Year
  Sex: Female

DRUGS (8)
  1. DEXAMETHASONE [Suspect]
  2. ONDANSETRON [Suspect]
  3. PROPOFOL [Suspect]
     Indication: INDUCTION AND MAINTENANCE OF ANAESTHESIA
  4. PROPOFOL [Suspect]
  5. FENTANYL [Suspect]
     Indication: INDUCTION OF ANAESTHESIA
  6. ATRACURIUM [Suspect]
     Indication: INDUCTION OF ANAESTHESIA
  7. PARACETAMOL [Suspect]
  8. DICLOFENAC [Suspect]

REACTIONS (2)
  - Dystonia [Recovered/Resolved]
  - Oculogyric crisis [Recovered/Resolved]
